FAERS Safety Report 7072712-5 (Version None)
Quarter: 2010Q4

REPORT INFORMATION
  Report Type: 
  Country: None (occurrence: None)
  Receive Date: 20101029
  Receipt Date: 20100302
  Transmission Date: 20110411
  Serious: No
  Sender: FDA-Public Use
  Company Number: A0847592A

PATIENT
  Age: 14 Year
  Sex: Male

DRUGS (2)
  1. ADVAIR DISKUS 100/50 [Suspect]
     Indication: ASTHMA
     Dosage: 2PUFF TWICE PER DAY
     Route: 055
  2. RESCUE REMEDY [Concomitant]
     Route: 055

REACTIONS (6)
  - CLAUSTROPHOBIA [None]
  - DARK CIRCLES UNDER EYES [None]
  - DIZZINESS [None]
  - DRUG INEFFECTIVE [None]
  - IRRITABILITY [None]
  - PRODUCTIVE COUGH [None]
